FAERS Safety Report 9776205 (Version 1)
Quarter: 2013Q4

REPORT INFORMATION
  Report Type: Spontaneous
  Country: IT (occurrence: IT)
  Receive Date: 20131220
  Receipt Date: 20131220
  Transmission Date: 20140711
  Serious: Yes (Hospitalization)
  Sender: FDA-Public Use
  Company Number: IT-MYLANLABS-2013S1027708

PATIENT
  Age: 17 Year
  Sex: Female

DRUGS (4)
  1. BACLOFEN [Suspect]
     Indication: DRUG ABUSE
     Dosage: LARGE AMOUNT OF PILLS, APPROXIMATELY 625MG, BEFORE EACH EPISODE
     Route: 048
  2. BACLOFEN [Suspect]
     Indication: DYSTONIA
     Dosage: LARGE AMOUNT OF PILLS, APPROXIMATELY 625MG, BEFORE EACH EPISODE
     Route: 048
  3. BACLOFEN [Suspect]
     Indication: DRUG ABUSE
     Route: 065
  4. BACLOFEN [Suspect]
     Indication: DYSTONIA
     Route: 065

REACTIONS (13)
  - Intentional overdose [Recovered/Resolved]
  - Drug abuse [Recovered/Resolved]
  - Coma [Recovered/Resolved]
  - Vomiting [Recovered/Resolved]
  - Agitation [Recovered/Resolved]
  - Confusional state [Recovered/Resolved]
  - Movement disorder [Recovered/Resolved]
  - Headache [Recovered/Resolved]
  - Vertigo [Recovered/Resolved]
  - Toxicity to various agents [Unknown]
  - Somnolence [Unknown]
  - Altered state of consciousness [Unknown]
  - Amnesia [Unknown]
